FAERS Safety Report 9014457 (Version 2)
Quarter: 2013Q1

REPORT INFORMATION
  Report Type: Report from Study
  Country: US (occurrence: US)
  Receive Date: 20130115
  Receipt Date: 20130131
  Transmission Date: 20140127
  Serious: Yes (Hospitalization)
  Sender: FDA-Public Use
  Company Number: US-GLAXOSMITHKLINE-A1007177A

PATIENT
  Age: 57 Year
  Sex: Male
  Weight: 80.3 kg

DRUGS (7)
  1. ADVAIR [Suspect]
     Indication: CHRONIC OBSTRUCTIVE PULMONARY DISEASE
     Route: 055
     Dates: start: 20120612
  2. VENTOLIN [Suspect]
     Indication: CHRONIC OBSTRUCTIVE PULMONARY DISEASE
     Dosage: 90MCG AS REQUIRED
     Route: 055
     Dates: start: 20120612
  3. BLINDED TRIAL MEDICATION [Concomitant]
     Indication: CHRONIC OBSTRUCTIVE PULMONARY DISEASE
     Route: 048
     Dates: start: 20120612
  4. BENICAR HCT [Concomitant]
     Indication: HYPERTENSION
     Route: 048
     Dates: start: 2009
  5. CRESTOR [Concomitant]
     Indication: HYPERLIPIDAEMIA
     Dosage: 5MG PER DAY
     Route: 048
     Dates: start: 2010
  6. OMEPRAZOLE [Concomitant]
     Indication: GASTROOESOPHAGEAL REFLUX DISEASE
     Dosage: 20MG AS REQUIRED
     Route: 048
     Dates: start: 2004
  7. SPIRIVA [Concomitant]
     Indication: CHRONIC OBSTRUCTIVE PULMONARY DISEASE
     Dosage: 18MCG PER DAY
     Route: 055
     Dates: start: 2012

REACTIONS (1)
  - Cerebrovascular accident [Recovering/Resolving]
